FAERS Safety Report 5727424-4 (Version None)
Quarter: 2008Q2

REPORT INFORMATION
  Report Type: 
  Country: None (occurrence: None)
  Receive Date: 20080505
  Receipt Date: 20080425
  Transmission Date: 20081010
  Serious: Yes (Disabling)
  Sender: FDA-Public Use
  Company Number: NL-ASTRAZENECA-2008AC01069

PATIENT
  Age: 34080 Day
  Sex: Male
  Weight: 65.5 kg

DRUGS (8)
  1. SEROQUEL XR [Suspect]
     Indication: PARANOIA
     Route: 048
     Dates: start: 20080416
  2. SEROQUEL XR [Suspect]
     Dosage: DOSE REDUCED
     Route: 048
  3. CITALOPRAM HYDROBROMIDE [Suspect]
     Indication: DEPRESSION
     Dosage: 20 MG
     Dates: start: 20080411
  4. PANTOPRAZOLE SODIUM [Concomitant]
     Indication: PROPHYLAXIS
  5. METFORMIN HCL [Concomitant]
     Indication: TYPE 2 DIABETES MELLITUS
  6. VITAMIN D [Concomitant]
     Indication: VITAMIN D DEFICIENCY
     Dosage: 400 IE PER DAY
  7. LORAZEPAM [Concomitant]
     Indication: ANXIETY
  8. FLURAZEPAM [Concomitant]
     Indication: SLEEP DISORDER

REACTIONS (1)
  - URINARY RETENTION [None]
